FAERS Safety Report 4971613-3 (Version None)
Quarter: 2006Q2

REPORT INFORMATION
  Report Type: 
  Country: None (occurrence: None)
  Receive Date: 20060413
  Receipt Date: 20060403
  Transmission Date: 20061013
  Serious: Yes (Other)
  Sender: FDA-Public Use
  Company Number: GB-JNJFOC-20060400749

PATIENT
  Age: 20 Year
  Sex: Female

DRUGS (1)
  1. RISPERDAL CONSTA [Suspect]
     Indication: DRUG USE FOR UNKNOWN INDICATION
     Dosage: TREATED FOR ABOUT THE LAST 12 MONTHS
     Route: 030

REACTIONS (3)
  - CLUBBING [None]
  - CONVULSION [None]
  - TALIPES [None]
